FAERS Safety Report 16656493 (Version 5)
Quarter: 2019Q3

REPORT INFORMATION
  Report Type: Report from Study
  Country: US (occurrence: US)
  Receive Date: 20190801
  Receipt Date: 20190920
  Transmission Date: 20191004
  Serious: Yes (Other)
  Sender: FDA-Public Use
  Company Number: US-PFIZER INC-2019327084

PATIENT
  Age: 73 Year
  Sex: Male

DRUGS (3)
  1. SUTENT [Suspect]
     Active Substance: SUNITINIB MALATE
     Indication: RENAL CELL CARCINOMA
     Dosage: 50 MG, CYCLIC [QD, 28 DAYS ON, 14 DAYS OFF]
     Route: 048
     Dates: start: 20190720, end: 20190809
  2. SUTENT [Suspect]
     Active Substance: SUNITINIB MALATE
     Dosage: 50 MG, CYCLIC (50 MG 4 WEEKS ON, 2 WEEKS OFF)
     Route: 048
     Dates: start: 20190913
  3. SUTENT [Suspect]
     Active Substance: SUNITINIB MALATE
     Dosage: 50 MG, CYCLIC (50 MG DAILY FOR 4 WEEKS ON, 2 WEEKS OFF )
     Dates: start: 20190820, end: 20190828

REACTIONS (9)
  - Visual impairment [Unknown]
  - Mucosal inflammation [Unknown]
  - Gingival pain [Unknown]
  - Stomatitis [Unknown]
  - Hyperglycaemia [Unknown]
  - Dry mouth [Not Recovered/Not Resolved]
  - Pain in extremity [Unknown]
  - Nausea [Unknown]
  - Diarrhoea [Recovered/Resolved]

NARRATIVE: CASE EVENT DATE: 201907
